FAERS Safety Report 5128951-3 (Version None)
Quarter: 2006Q4

REPORT INFORMATION
  Report Type: 
  Country: None (occurrence: None)
  Receive Date: 20061011
  Receipt Date: 20060929
  Transmission Date: 20070319
  Serious: Yes (Hospitalization, Other)
  Sender: FDA-Public Use
  Company Number: 2006AL002987

PATIENT
  Age: 75 Year
  Sex: Female
  Weight: 60.3284 kg

DRUGS (9)
  1. DIGOXIN [Suspect]
     Indication: CARDIAC FAILURE CONGESTIVE
     Dosage: 0.125 MG; QD; PO
     Route: 048
     Dates: start: 20060627
  2. NESIRITIDE [Concomitant]
  3. CARVEDILOL [Concomitant]
  4. SPIRONOLACTONE [Concomitant]
  5. BUMETANIDE [Concomitant]
  6. ASPIRIN [Concomitant]
  7. ISOSORBIDE [Concomitant]
  8. ATORVASTATIN CALCIUM [Concomitant]
  9. HYDRALAZINE HCL [Concomitant]

REACTIONS (2)
  - CARDIAC FAILURE ACUTE [None]
  - CARDIAC FAILURE CONGESTIVE [None]
